FAERS Safety Report 8447915-5 (Version None)
Quarter: 2012Q2

REPORT INFORMATION
  Report Type: 
  Country: None (occurrence: None)
  Receive Date: 20120619
  Receipt Date: 20120612
  Transmission Date: 20120825
  Serious: Yes (Hospitalization)
  Sender: FDA-Public Use
  Company Number: PHHY2012DE051472

PATIENT
  Age: 63 Year
  Sex: Female

DRUGS (1)
  1. TASIGNA [Suspect]
     Dosage: 300 MG, BID
     Route: 048

REACTIONS (2)
  - PERIPHERAL ARTERIAL OCCLUSIVE DISEASE [None]
  - CORONARY ARTERY STENOSIS [None]
